FAERS Safety Report 7146844 (Version 31)
Quarter: 2014Q2

REPORT INFORMATION
  Report Type: Spontaneous
  Country: US (occurrence: US)
  Receive Date: 20091012
  Receipt Date: 20140619
  Transmission Date: 20141212
  Serious: Yes (Hospitalization, Other)
  Sender: FDA-Public Use
  Company Number: PHEH2009US13008

PATIENT
  Sex: Female

DRUGS (21)
  1. AREDIA [Suspect]
     Indication: METASTASES TO BONE
     Route: 042
     Dates: start: 200503
  2. AREDIA [Suspect]
     Indication: OSTEOPOROSIS
     Dosage: 90 MG
     Route: 042
     Dates: end: 2006
  3. AREDIA [Suspect]
     Indication: BONE LOSS
  4. ZOMETA [Suspect]
     Indication: METASTASES TO BONE
     Route: 042
     Dates: start: 2005
  5. ZOMETA [Suspect]
     Indication: OSTEOPOROSIS
     Dosage: 4 MG
     Route: 042
     Dates: start: 200602, end: 20060322
  6. ZOMETA [Suspect]
     Indication: BREAST CANCER METASTATIC
  7. ZOMETA [Suspect]
     Indication: OSTEOPOROSIS
  8. CHEMOTHERAPEUTICS [Suspect]
  9. VICODIN [Concomitant]
  10. TAMOXIFEN [Concomitant]
  11. OXYCONTIN [Concomitant]
  12. ZOFRAN [Concomitant]
  13. AVASTIN [Concomitant]
  14. CYTOXAN [Concomitant]
  15. HERCEPTIN [Concomitant]
  16. TAXOTERE [Concomitant]
  17. ACIPHEX [Concomitant]
  18. LORAZEPAM [Concomitant]
  19. COMPAZINE [Concomitant]
  20. IMDUR [Concomitant]
  21. PARAPLATIN [Concomitant]

REACTIONS (131)
  - Gastritis [Unknown]
  - Nausea [Unknown]
  - Vomiting [Unknown]
  - Abdominal pain [Unknown]
  - Diarrhoea [Unknown]
  - Gastrointestinal viral infection [Unknown]
  - Angina unstable [Unknown]
  - Osteonecrosis of jaw [Unknown]
  - Injury [Unknown]
  - Exposed bone in jaw [Unknown]
  - Wound dehiscence [Unknown]
  - Pain [Unknown]
  - Gingival pain [Unknown]
  - Primary sequestrum [Unknown]
  - Osteomyelitis [Unknown]
  - Tricuspid valve incompetence [Unknown]
  - Aortic valve incompetence [Unknown]
  - Mitral valve incompetence [Unknown]
  - Cardiomyopathy [Unknown]
  - Polyneuropathy [Unknown]
  - Skin papilloma [Unknown]
  - Atelectasis [Unknown]
  - Arteriosclerosis coronary artery [Unknown]
  - Retinopathy hypertensive [Unknown]
  - Essential hypertension [Unknown]
  - Urinary tract infection [Unknown]
  - Laceration [Unknown]
  - Arteriospasm coronary [Recovered/Resolved]
  - Normochromic normocytic anaemia [Unknown]
  - Ventricular hypokinesia [Unknown]
  - QRS axis abnormal [Unknown]
  - Left ventricular hypertrophy [Unknown]
  - Breast cancer metastatic [Unknown]
  - Leukopenia [Unknown]
  - Hypoaesthesia [Unknown]
  - Paraesthesia [Unknown]
  - Bone pain [Unknown]
  - Ingrowing nail [Unknown]
  - Dysuria [Unknown]
  - Dyslipidaemia [Unknown]
  - Gastrooesophageal reflux disease [Unknown]
  - Emotional distress [Unknown]
  - Musculoskeletal chest pain [Unknown]
  - Dyspnoea [Unknown]
  - Arthralgia [Unknown]
  - Proteinuria [Unknown]
  - Spinal osteoarthritis [Unknown]
  - Vascular calcification [Unknown]
  - Fatigue [Unknown]
  - Contusion [Unknown]
  - Hypercholesterolaemia [Unknown]
  - Metastases to bone [Unknown]
  - Chest pain [Unknown]
  - Blepharitis [Unknown]
  - Haematuria [Unknown]
  - Renal cyst [Unknown]
  - Hepatic lesion [Unknown]
  - Infection [Unknown]
  - Lymph node calcification [Unknown]
  - Osteopenia [Unknown]
  - Pulmonary fibrosis [Unknown]
  - Osteosclerosis [Unknown]
  - Musculoskeletal pain [Unknown]
  - Angiomyolipoma [Unknown]
  - Intervertebral disc space narrowing [Unknown]
  - Spinal column stenosis [Unknown]
  - Vertebral foraminal stenosis [Unknown]
  - Bone deformity [Unknown]
  - Pleural fibrosis [Unknown]
  - Myocardial infarction [Unknown]
  - Pancreatic atrophy [Unknown]
  - Fall [Unknown]
  - Rib fracture [Unknown]
  - Syncope [Unknown]
  - Pulmonary contusion [Unknown]
  - Adrenal insufficiency [Unknown]
  - Helicobacter infection [Unknown]
  - Pathological fracture [Unknown]
  - Renal failure chronic [Unknown]
  - Conjunctival deposit [Unknown]
  - Cataract [Unknown]
  - Blepharospasm [Unknown]
  - Plantar fascial fibromatosis [Unknown]
  - Hypotension [Unknown]
  - Lacrimation increased [Unknown]
  - Vitreous floaters [Unknown]
  - Aortic calcification [Unknown]
  - Aortic valve sclerosis [Unknown]
  - Tinea pedis [Unknown]
  - Renal hypertension [Unknown]
  - Coronary artery disease [Unknown]
  - Neuropathy peripheral [Unknown]
  - Pain in extremity [Unknown]
  - Hyperlipidaemia [Unknown]
  - Pulmonary mass [Unknown]
  - Plantar fasciitis [Unknown]
  - Dental caries [Unknown]
  - Pain in jaw [Unknown]
  - Toothache [Unknown]
  - Tooth loss [Unknown]
  - Alopecia [Unknown]
  - Tenderness [Unknown]
  - Chest discomfort [Unknown]
  - Muscle spasms [Unknown]
  - Oesophagitis [Unknown]
  - Post procedural complication [Unknown]
  - Scar [Unknown]
  - Blood glucose increased [Unknown]
  - Decreased appetite [Unknown]
  - Tooth abscess [Unknown]
  - Headache [Unknown]
  - Mental status changes [Unknown]
  - Mouth ulceration [Unknown]
  - Bone lesion [Unknown]
  - Intervertebral disc disorder [Unknown]
  - Discomfort [Unknown]
  - Epistaxis [Unknown]
  - Influenza like illness [Unknown]
  - Post procedural discharge [Unknown]
  - Osteolysis [Unknown]
  - Soft tissue mass [Unknown]
  - Diverticulum intestinal [Unknown]
  - Metastases to spine [Unknown]
  - Pulmonary valve incompetence [Unknown]
  - Goitre [Unknown]
  - Cataract nuclear [Unknown]
  - Pulmonary calcification [Unknown]
  - Pulmonary granuloma [Unknown]
  - Lymphadenopathy [Unknown]
  - Arthritis [Unknown]
  - Constipation [Unknown]
